FAERS Safety Report 20430698 (Version 1)
Quarter: 2022Q1

REPORT INFORMATION
  Report Type: Report from Study
  Country: FR (occurrence: FR)
  Receive Date: 20220204
  Receipt Date: 20220204
  Transmission Date: 20220423
  Serious: Yes (Other)
  Sender: FDA-Public Use
  Company Number: FR-SERVIER-S21001445

PATIENT

DRUGS (8)
  1. PEGASPARGASE [Suspect]
     Active Substance: PEGASPARGASE
     Indication: Acute lymphocytic leukaemia
     Dosage: 2300 IU, D12, D26
     Route: 042
     Dates: start: 20200808, end: 20200822
  2. TN UNSPECIFIED [Concomitant]
     Indication: Acute lymphocytic leukaemia
     Dosage: 900 MG, D9
     Route: 042
     Dates: start: 20200805
  3. TN UNSPECIFIED [Concomitant]
     Indication: Acute lymphocytic leukaemia
     Dosage: 1.4 MG, D8, D15, D22, D29
     Route: 042
     Dates: start: 20200804, end: 20200825
  4. TN UNSPECIFIED [Concomitant]
     Indication: Acute lymphocytic leukaemia
     Dosage: UNK, D9, D13, D18, D24
     Route: 065
     Dates: start: 20200805, end: 20200820
  5. TN UNSPECIFIED [Concomitant]
     Indication: Acute lymphocytic leukaemia
     Dosage: UNK, D9, D13, D18, D24
     Route: 065
     Dates: start: 20200805, end: 20200820
  6. TN UNSPECIFIED [Concomitant]
     Indication: Acute lymphocytic leukaemia
     Dosage: UNK, D9, D13, D18, D24
     Route: 065
     Dates: start: 20200805, end: 20200820
  7. TN UNSPECIFIED [Concomitant]
     Indication: Acute lymphocytic leukaemia
     Dosage: UNK, D8 TO D28
     Route: 065
     Dates: start: 20200804, end: 20200824
  8. TN UNSPECIFIED [Concomitant]
     Indication: Acute lymphocytic leukaemia
     Dosage: UNK, D8, D15, D22, D29
     Route: 065
     Dates: start: 20200804, end: 20200825

REACTIONS (2)
  - Hyperlipidaemia [Recovered/Resolved]
  - Hypertriglyceridaemia [Not Recovered/Not Resolved]

NARRATIVE: CASE EVENT DATE: 20200911
